FAERS Safety Report 7776462-9 (Version None)
Quarter: 2011Q3

REPORT INFORMATION
  Report Type: 
  Country: None (occurrence: None)
  Receive Date: 20110926
  Receipt Date: 20110913
  Transmission Date: 20111222
  Serious: Yes (Other)
  Sender: FDA-Public Use
  Company Number: US-ELI_LILLY_AND_COMPANY-US201004005335

PATIENT
  Sex: Female

DRUGS (4)
  1. LISINOPRIL [Concomitant]
  2. FORTEO [Suspect]
     Indication: OSTEOPOROSIS
     Dosage: 20 UG, DAILY (1/D)
     Route: 065
     Dates: start: 20100304
  3. CALCIUM CARBONATE [Concomitant]
  4. VITAMIN D [Concomitant]

REACTIONS (6)
  - AMNESIA [None]
  - BLOOD CALCIUM INCREASED [None]
  - ASTHENIA [None]
  - MENTAL IMPAIRMENT [None]
  - BREAST CANCER [None]
  - DIZZINESS [None]
